FAERS Safety Report 4406819-5 (Version None)
Quarter: 2004Q3

REPORT INFORMATION
  Report Type: 
  Country: None (occurrence: None)
  Receive Date: 20040715
  Receipt Date: 20040709
  Transmission Date: 20050211
  Serious: Yes (Other)
  Sender: FDA-Public Use
  Company Number: PERI00204002308

PATIENT
  Age: 81 Year
  Sex: Female

DRUGS (4)
  1. COVERSYL (PERINDOPRIL) [Suspect]
     Indication: ILL-DEFINED DISORDER
     Dosage: 4 MG QD PO
     Route: 048
     Dates: end: 20030303
  2. PANTOPRAZOLE (PANTOPRAZOLE) [Concomitant]
  3. ATORVASTATIN CALCIUM [Concomitant]
  4. ACETYLSALICYLIC ACID SRT [Concomitant]

REACTIONS (5)
  - OEDEMA GENITAL [None]
  - OEDEMA PERIPHERAL [None]
  - PRURITUS [None]
  - SWOLLEN TONGUE [None]
  - TESTICULAR SWELLING [None]
